FAERS Safety Report 9882661 (Version 1)
Quarter: 2014Q1

REPORT INFORMATION
  Report Type: Spontaneous
  Country: US (occurrence: US)
  Receive Date: 20140207
  Receipt Date: 20140207
  Transmission Date: 20141002
  Serious: Yes (Hospitalization)
  Sender: FDA-Public Use
  Company Number: CHPA2014US002242

PATIENT
  Sex: Female

DRUGS (1)
  1. TRIAMINIC UNKNOWN FORMULA [Suspect]
     Route: 048

REACTIONS (1)
  - Convulsion [Unknown]
